FAERS Safety Report 5774728-5 (Version None)
Quarter: 2008Q2

REPORT INFORMATION
  Report Type: 
  Country: None (occurrence: None)
  Receive Date: 20080617
  Receipt Date: 20080610
  Transmission Date: 20081010
  Serious: Yes (Life-Threatening, Hospitalization, Other)
  Sender: FDA-Public Use
  Company Number: GB-RANBAXY-2008RR-15720

PATIENT

DRUGS (1)
  1. IBUPROFEN TABLETS [Suspect]
     Indication: TOOTHACHE
     Dosage: 200 MG, PRN
     Route: 048

REACTIONS (4)
  - DYSPHAGIA [None]
  - DYSPNOEA [None]
  - ODYNOPHAGIA [None]
  - OESOPHAGEAL PERFORATION [None]
